FAERS Safety Report 19919914 (Version 1)
Quarter: 2021Q4

REPORT INFORMATION
  Report Type: Report from Study
  Country: US (occurrence: US)
  Receive Date: 20211005
  Receipt Date: 20211005
  Transmission Date: 20220303
  Serious: No
  Sender: FDA-Public Use
  Company Number: US-NOVARTISTESTPH-NVSC2021US223453

PATIENT
  Age: 24 Year
  Sex: Female

DRUGS (1)
  1. PREDNISONE [Suspect]
     Active Substance: PREDNISONE
     Indication: Haemoglobinuria
     Dosage: 80 MG
     Route: 048
     Dates: start: 201309, end: 201309

REACTIONS (3)
  - Mood swings [Recovered/Resolved]
  - Cushingoid [Recovered/Resolved]
  - Mental disorder [Recovered/Resolved]

NARRATIVE: CASE EVENT DATE: 20130901
